FAERS Safety Report 25188533 (Version 2)
Quarter: 2025Q2

REPORT INFORMATION
  Report Type: Spontaneous
  Country: CN (occurrence: CN)
  Receive Date: 20250411
  Receipt Date: 20250421
  Transmission Date: 20250716
  Serious: Yes (Life-Threatening, Hospitalization, Other)
  Sender: ALKEM
  Company Number: None

PATIENT
  Age: 21 Year
  Sex: Female

DRUGS (9)
  1. MYCOPHENOLATE MOFETIL [Suspect]
     Active Substance: MYCOPHENOLATE MOFETIL
     Indication: Systemic lupus erythematosus
     Dosage: 750 MILLIGRAM, BID (EVERY 12 HOUR)
     Route: 065
  2. TACROLIMUS [Suspect]
     Active Substance: TACROLIMUS
     Indication: Systemic lupus erythematosus
     Dosage: 1 MILLIGRAM, QD (EVERY 1 DAY)
     Route: 065
  3. METHYLPREDNISOLONE [Suspect]
     Active Substance: METHYLPREDNISOLONE
     Indication: Systemic lupus erythematosus
     Dosage: 9 DOSAGE FORM, QD (EVERY 1 DAY) (TABLET)
     Route: 048
  4. CYCLOPHOSPHAMIDE [Suspect]
     Active Substance: CYCLOPHOSPHAMIDE
     Indication: Encephalitis
     Route: 065
  5. DEXAMETHASONE [Suspect]
     Active Substance: DEXAMETHASONE
     Indication: Systemic lupus erythematosus
     Route: 037
  6. METHOTREXATE [Suspect]
     Active Substance: METHOTREXATE
     Indication: Encephalitis
     Route: 037
  7. Cenotrexate/Ritonavir [Concomitant]
     Indication: Hepatitis B
     Route: 065
  8. PROPOFOL [Concomitant]
     Active Substance: PROPOFOL
     Indication: Hepatitis B
     Route: 065
  9. TENOFOVIR [Concomitant]
     Active Substance: TENOFOVIR
     Indication: Hepatitis B
     Route: 065

REACTIONS (8)
  - Brain injury [Unknown]
  - Respiratory arrest [Unknown]
  - Coma [Unknown]
  - Cerebral toxoplasmosis [Unknown]
  - Central nervous system infection [Unknown]
  - Peripheral nerve infection [Unknown]
  - Condition aggravated [Unknown]
  - COVID-19 [Unknown]

NARRATIVE: CASE EVENT DATE: 20230101
